FAERS Safety Report 7658917-0 (Version None)
Quarter: 2011Q3

REPORT INFORMATION
  Report Type: 
  Country: None (occurrence: None)
  Receive Date: 20110805
  Receipt Date: 20110803
  Transmission Date: 20111222
  Serious: Yes (Life-Threatening, Hospitalization)
  Sender: FDA-Public Use
  Company Number: CA-B.I. PHARMACEUTICALS,INC./RIDGEFIELD-2011-CN-01053CN

PATIENT
  Sex: Female

DRUGS (2)
  1. PRADAXA [Suspect]
     Dosage: 220 MG
     Dates: start: 20110721, end: 20110801
  2. MEDICATION NOT FURTHER SPECIFIED [Concomitant]

REACTIONS (1)
  - ACUTE CORONARY SYNDROME [None]
